FAERS Safety Report 8081928-0 (Version None)
Quarter: 2012Q1

REPORT INFORMATION
  Report Type: 
  Country: None (occurrence: None)
  Receive Date: 20120130
  Receipt Date: 20110812
  Transmission Date: 20120608
  Serious: No
  Sender: FDA-Public Use
  Company Number: US-ABBOTT-11P-163-0696948-00

PATIENT
  Sex: Male

DRUGS (3)
  1. UNKNOWN OTHER MEDICATIONS [Concomitant]
     Indication: PRODUCT USED FOR UNKNOWN INDICATION
  2. LUPRON DEPOT [Suspect]
     Indication: PROSTATE CANCER
     Dates: end: 20101001
  3. RADIATION THERAPY [Concomitant]
     Indication: PRODUCT USED FOR UNKNOWN INDICATION

REACTIONS (13)
  - OEDEMA PERIPHERAL [None]
  - COGNITIVE DISORDER [None]
  - GYNAECOMASTIA [None]
  - SLEEP DISORDER [None]
  - MUSCLE ATROPHY [None]
  - CHILLS [None]
  - BONE DENSITY ABNORMAL [None]
  - MUSCULAR WEAKNESS [None]
  - DRY SKIN [None]
  - HOT FLUSH [None]
  - HYPERHIDROSIS [None]
  - BLOOD TESTOSTERONE DECREASED [None]
  - WEIGHT INCREASED [None]
